FAERS Safety Report 21571131 (Version 1)
Quarter: 2022Q4

REPORT INFORMATION
  Report Type: Spontaneous
  Country: US (occurrence: None)
  Receive Date: 20221107
  Receipt Date: 20221107
  Transmission Date: 20230113
  Serious: Yes (Hospitalization)
  Sender: FDA-Public Use
  Company Number: None

PATIENT
  Age: 75 Year
  Sex: Male

DRUGS (2)
  1. RIVAROXABAN [Suspect]
     Active Substance: RIVAROXABAN
     Indication: Deep vein thrombosis
     Dosage: 20 MG EVERY DAY PO?
     Route: 048
     Dates: start: 20191205, end: 20220929
  2. RIVAROXABAN [Suspect]
     Active Substance: RIVAROXABAN
     Indication: Atrial fibrillation

REACTIONS (12)
  - Dyspnoea [None]
  - Deep vein thrombosis [None]
  - Atrial fibrillation [None]
  - Blood pressure fluctuation [None]
  - Metabolic acidosis [None]
  - Coagulation time prolonged [None]
  - Chest X-ray abnormal [None]
  - Aortic arteriosclerosis [None]
  - Pulmonary oedema [None]
  - Acute kidney injury [None]
  - Hypotension [None]
  - Gouty arthritis [None]

NARRATIVE: CASE EVENT DATE: 20220928
